FAERS Safety Report 5509043-8 (Version None)
Quarter: 2007Q4

REPORT INFORMATION
  Report Type: 
  Country: None (occurrence: None)
  Receive Date: 20071107
  Receipt Date: 20071017
  Transmission Date: 20080405
  Serious: Yes (Life-Threatening, Other)
  Sender: FDA-Public Use
  Company Number: JP-ASTRAZENECA-2007AP01903

PATIENT
  Age: 55 Year
  Sex: Male
  Weight: 42.3 kg

DRUGS (9)
  1. MEROPENEM [Suspect]
     Indication: PNEUMONIA
     Route: 042
     Dates: start: 20070206, end: 20070207
  2. LOXONIN [Suspect]
     Indication: INFLAMMATION
     Route: 048
     Dates: start: 20070206, end: 20070207
  3. MINOCYCLINE HCL [Suspect]
     Indication: PNEUMONIA
     Route: 041
     Dates: start: 20070206, end: 20070207
  4. ALDIOXA [Concomitant]
     Indication: GASTRITIS
     Route: 048
     Dates: start: 20070206, end: 20070207
  5. CLARITHROMYCIN [Concomitant]
     Indication: PNEUMONIA
     Route: 048
     Dates: start: 20070206, end: 20070207
  6. VOLTAREN [Concomitant]
     Indication: INFLAMMATION
     Route: 054
     Dates: start: 20070206, end: 20070207
  7. ZANTAC [Concomitant]
     Indication: GASTROINTESTINAL HAEMORRHAGE
     Route: 041
     Dates: start: 20070206, end: 20070206
  8. KN SUPPLEMENT 3B [Concomitant]
     Indication: SUPPLEMENTATION THERAPY
     Route: 041
     Dates: start: 20070206, end: 20070207
  9. SOLACET-F [Concomitant]
     Indication: SUPPLEMENTATION THERAPY
     Route: 041
     Dates: start: 20070206, end: 20070207

REACTIONS (3)
  - HEPATIC FUNCTION ABNORMAL [None]
  - PLATELET COUNT DECREASED [None]
  - WHITE BLOOD CELL COUNT DECREASED [None]
